FAERS Safety Report 9685355 (Version 3)
Quarter: 2014Q1

REPORT INFORMATION
  Report Type: Report from Study
  Country: BR (occurrence: BR)
  Receive Date: 20131113
  Receipt Date: 20140203
  Transmission Date: 20141002
  Serious: Yes (Other)
  Sender: FDA-Public Use
  Company Number: PHHY2013BR129013

PATIENT
  Age: 57 Year
  Sex: Female

DRUGS (3)
  1. DIOVAN HCT [Suspect]
     Indication: HYPERTENSION
     Dosage: 1 DF (80MG VALS+12.5MG HCT), QD
     Route: 048
  2. DIOVAN HCT [Suspect]
     Dosage: 1 DF (80MG VALS+12.5MG HCT), QD
     Route: 048
  3. EUTHYROX [Concomitant]
     Indication: HYPOTHYROIDISM
     Dosage: 50 MG, DAILY
     Route: 048

REACTIONS (5)
  - Dengue fever [Recovered/Resolved]
  - Hiatus hernia [Not Recovered/Not Resolved]
  - Syncope [Recovering/Resolving]
  - Asthenia [Recovering/Resolving]
  - Blood pressure decreased [Recovered/Resolved]
